FAERS Safety Report 5690327-8 (Version None)
Quarter: 2008Q2

REPORT INFORMATION
  Report Type: 
  Country: None (occurrence: None)
  Receive Date: 20080401
  Receipt Date: 20011212
  Transmission Date: 20081010
  Serious: Yes (Death)
  Sender: FDA-Public Use
  Company Number: US-ROCHE-303490

PATIENT
  Age: 64 Year
  Sex: Female

DRUGS (3)
  1. ROCEPHIN [Suspect]
     Indication: INFECTION
     Route: 042
     Dates: start: 20011101, end: 20011201
  2. CIPRO [Concomitant]
     Indication: INFECTION
     Dates: start: 20011101, end: 20011201
  3. DILANTIN [Concomitant]

REACTIONS (4)
  - DEATH [None]
  - HEPATIC FUNCTION ABNORMAL [None]
  - THROMBOCYTOPENIA [None]
  - WHITE BLOOD CELL COUNT DECREASED [None]
